FAERS Safety Report 17057465 (Version 1)
Quarter: 2019Q4

REPORT INFORMATION
  Report Type: Spontaneous
  Country: US (occurrence: US)
  Receive Date: 20191121
  Receipt Date: 20191121
  Transmission Date: 20200122
  Serious: No
  Sender: FDA-Public Use
  Company Number: US-MYLANLABS-2019M1106674

PATIENT
  Sex: Female

DRUGS (1)
  1. ALPRAZOLAM TABLETS, USP [Suspect]
     Active Substance: ALPRAZOLAM
     Indication: ANXIETY
     Dosage: UNK
     Route: 048

REACTIONS (3)
  - Infection [Not Recovered/Not Resolved]
  - Recalled product administered [Not Recovered/Not Resolved]
  - Cough [Not Recovered/Not Resolved]
